FAERS Safety Report 8460119-5 (Version None)
Quarter: 2012Q2

REPORT INFORMATION
  Report Type: 
  Country: None (occurrence: None)
  Receive Date: 20120622
  Receipt Date: 20120612
  Transmission Date: 20120825
  Serious: Yes (Hospitalization, Disabling, Other)
  Sender: FDA-Public Use
  Company Number: US-ELI_LILLY_AND_COMPANY-US201204007126

PATIENT
  Sex: Female
  Weight: 62.132 kg

DRUGS (2)
  1. HUMALOG [Suspect]
     Indication: DIABETES MELLITUS
     Dosage: UNK, PRN
     Dates: start: 20080101
  2. LANTUS [Concomitant]
     Dosage: UNK

REACTIONS (5)
  - GAIT DISTURBANCE [None]
  - SPINAL COLUMN STENOSIS [None]
  - OSTEOARTHRITIS [None]
  - VISUAL ACUITY REDUCED [None]
  - ROAD TRAFFIC ACCIDENT [None]
